FAERS Safety Report 15523011 (Version 4)
Quarter: 2018Q4

REPORT INFORMATION
  Report Type: Spontaneous
  Country: US (occurrence: US)
  Receive Date: 20181017
  Receipt Date: 20181106
  Transmission Date: 20190205
  Serious: Yes (Hospitalization)
  Sender: FDA-Public Use
  Company Number: US-CELGENEUS-USA-20181003636

PATIENT
  Age: 63 Year
  Sex: Male

DRUGS (3)
  1. HUMIRA [Concomitant]
     Active Substance: ADALIMUMAB
     Indication: PRODUCT USED FOR UNKNOWN INDICATION
     Dosage: 40MG/0.8ML
     Route: 065
     Dates: start: 20170512, end: 20170914
  2. OTEZLA [Suspect]
     Active Substance: APREMILAST
     Indication: PSORIASIS
     Dosage: 30 MILLIGRAM
     Route: 048
     Dates: start: 20180228, end: 20180929
  3. ENBREL [Concomitant]
     Active Substance: ETANERCEPT
     Indication: PRODUCT USED FOR UNKNOWN INDICATION
     Dosage: 50 MILLIGRAM/MILLILITERS
     Route: 065
     Dates: start: 20171006, end: 20180108

REACTIONS (3)
  - Hemiparesis [Unknown]
  - Brain neoplasm [Unknown]
  - Asthenia [Unknown]

NARRATIVE: CASE EVENT DATE: 2018
